FAERS Safety Report 22229380 (Version 1)
Quarter: 2023Q2

REPORT INFORMATION
  Report Type: Spontaneous
  Country: US (occurrence: US)
  Receive Date: 20230419
  Receipt Date: 20230419
  Transmission Date: 20230722
  Serious: No
  Sender: FDA-Public Use
  Company Number: US-ALLERGAN-2224680US

PATIENT
  Age: 85 Year
  Sex: Female
  Weight: 61.688 kg

DRUGS (2)
  1. RESTASIS [Suspect]
     Active Substance: CYCLOSPORINE
     Indication: Dry eye
     Dosage: 2 GTT, QD
     Route: 047
     Dates: start: 20220511
  2. RESTASIS [Suspect]
     Active Substance: CYCLOSPORINE
     Indication: Injury corneal

REACTIONS (2)
  - Off label use [Unknown]
  - Multiple use of single-use product [Unknown]

NARRATIVE: CASE EVENT DATE: 20220511
